FAERS Safety Report 7824693-1 (Version None)
Quarter: 2011Q4

REPORT INFORMATION
  Report Type: 
  Country: None (occurrence: None)
  Receive Date: 20111019
  Receipt Date: 20111006
  Transmission Date: 20120403
  Serious: Yes (Other)
  Sender: FDA-Public Use
  Company Number: PHHY2011JP85654

PATIENT
  Age: 52 Year
  Sex: Male

DRUGS (2)
  1. GLEEVEC [Suspect]
     Indication: GASTROINTESTINAL STROMAL TUMOUR
     Dosage: 400 MG, DAILY
     Route: 048
  2. GLEEVEC [Suspect]
     Dosage: 800 MG, DAILY
     Route: 048

REACTIONS (5)
  - HEPATIC NEOPLASM [None]
  - EYELID OEDEMA [None]
  - DRUG INEFFECTIVE [None]
  - METASTASES TO LIVER [None]
  - PERITONEAL DISORDER [None]
